FAERS Safety Report 8054407-4 (Version None)
Quarter: 2012Q1

REPORT INFORMATION
  Report Type: 
  Country: None (occurrence: None)
  Receive Date: 20120118
  Receipt Date: 20120109
  Transmission Date: 20120608
  Serious: Yes (Other)
  Sender: FDA-Public Use
  Company Number: AR-ASTRAZENECA-2012SE01713

PATIENT
  Age: 69 Year
  Sex: Male

DRUGS (2)
  1. QUETIAPINE [Suspect]
     Route: 048
     Dates: start: 20100601, end: 20111001
  2. QUETIAPINE [Suspect]
     Route: 048
     Dates: start: 20111001

REACTIONS (1)
  - ARTERIAL THROMBOSIS LIMB [None]
